FAERS Safety Report 8655454 (Version 3)
Quarter: 2012Q4

REPORT INFORMATION
  Report Type: Report from Study
  Country: US (occurrence: US)
  Receive Date: 20120709
  Receipt Date: 20121221
  Transmission Date: 20130627
  Serious: Yes (Other)
  Sender: FDA-Public Use
  Company Number: US-PFIZER INC-2010012108

PATIENT
  Age: 75 Year
  Sex: Female
  Weight: 75 kg

DRUGS (4)
  1. LIPITOR [Suspect]
     Indication: HIGH CHOLESTEROL
     Dosage: 20 mg, 1x/day
     Route: 048
     Dates: start: 2002
  2. CELEBREX [Suspect]
     Indication: ARTHRITIS
     Dosage: 200 mg, 1x/day
     Route: 048
  3. SYNTHROID [Suspect]
     Indication: THYROID DISORDER
     Dosage: UNK
     Route: 048
  4. LOTREL [Concomitant]
     Indication: BLOOD PRESSURE
     Dosage: UNK
     Route: 048

REACTIONS (19)
  - Tongue paralysis [Recovered/Resolved]
  - Fall [Not Recovered/Not Resolved]
  - Spinal fracture [Not Recovered/Not Resolved]
  - Spinal column stenosis [Not Recovered/Not Resolved]
  - Nerve injury [Unknown]
  - Ankle fracture [Unknown]
  - Fracture [Unknown]
  - Lower limb fracture [Unknown]
  - Neuropathy peripheral [Unknown]
  - Swollen tongue [Recovered/Resolved]
  - Alopecia [Unknown]
  - Anxiety [Unknown]
  - Depression [Unknown]
  - Crying [Unknown]
  - Malaise [Unknown]
  - Muscle atrophy [Unknown]
  - Intervertebral disc protrusion [Unknown]
  - Sciatica [Unknown]
  - Dyspepsia [Unknown]
